FAERS Safety Report 5099349-1 (Version None)
Quarter: 2006Q3

REPORT INFORMATION
  Report Type: 
  Country: None (occurrence: None)
  Receive Date: 20060728
  Receipt Date: 20060214
  Transmission Date: 20061208
  Serious: Yes (Other)
  Sender: FDA-Public Use
  Company Number: US-JNJFOC-20060203711

PATIENT
  Age: 12 Month
  Sex: Male
  Weight: 15 kg

DRUGS (2)
  1. CHILDREN'S MOTRIN [Suspect]
     Indication: OTITIS MEDIA
     Dosage: 150 MG, 1 IN 1 TOTAL, ORAL
     Route: 048
     Dates: start: 20060214, end: 20060214
  2. ANTIBIOTIC (ANTIBIOTICS) [Concomitant]

REACTIONS (1)
  - FEBRILE CONVULSION [None]
